FAERS Safety Report 6413915-X (Version None)
Quarter: 2009Q4

REPORT INFORMATION
  Report Type: 
  Country: None (occurrence: None)
  Receive Date: 20091026
  Receipt Date: 20091016
  Transmission Date: 20100525
  Serious: Yes (Hospitalization, Other)
  Sender: FDA-Public Use
  Company Number: GB-JNJFOC-20091005188

PATIENT
  Age: 61 Year
  Sex: Female

DRUGS (5)
  1. CAELYX [Suspect]
     Indication: OVARIAN CANCER
     Route: 042
  2. CO-DANTHRAMER [Concomitant]
  3. MORPHINE SULFATE [Concomitant]
  4. OMEPRAZOLE [Concomitant]
  5. ORAMORPH SR [Concomitant]

REACTIONS (11)
  - ABDOMINAL PAIN [None]
  - COUGH [None]
  - DEHYDRATION [None]
  - DYSURIA [None]
  - MALAISE [None]
  - NAUSEA [None]
  - ORAL CANDIDIASIS [None]
  - ORAL PAIN [None]
  - PYREXIA [None]
  - RENAL FAILURE [None]
  - VOMITING [None]
